FAERS Safety Report 14610638 (Version 1)
Quarter: 2018Q1

REPORT INFORMATION
  Report Type: Spontaneous
  Country: CO (occurrence: CO)
  Receive Date: 20180307
  Receipt Date: 20180307
  Transmission Date: 20180509
  Serious: Yes (Other)
  Sender: FDA-Public Use
  Company Number: CO-009507513-1802COL014025

PATIENT
  Age: 40 Year
  Sex: Female
  Weight: 74 kg

DRUGS (1)
  1. IMPLANON [Suspect]
     Active Substance: ETONOGESTREL
     Indication: CONTRACEPTION
     Dosage: FIRST IMPLANT
     Route: 059
     Dates: start: 20171101, end: 20180226

REACTIONS (2)
  - Menometrorrhagia [Not Recovered/Not Resolved]
  - Varicose vein [Not Recovered/Not Resolved]

NARRATIVE: CASE EVENT DATE: 20171110
